FAERS Safety Report 7843981-6 (Version None)
Quarter: 2011Q4

REPORT INFORMATION
  Report Type: 
  Country: None (occurrence: None)
  Receive Date: 20111025
  Receipt Date: 20111018
  Transmission Date: 20120403
  Serious: Yes (Life-Threatening, Hospitalization)
  Sender: FDA-Public Use
  Company Number: PHHO2010RU03694

PATIENT
  Sex: Male
  Weight: 79.9 kg

DRUGS (20)
  1. ENALAPRIL MALEATE [Suspect]
     Indication: CARDIAC FAILURE
     Dosage: CODE NOT BROKEN
     Route: 048
     Dates: start: 20091126
  2. ALISKIREN [Suspect]
     Indication: CARDIAC FAILURE
     Dosage: UNK
     Route: 048
     Dates: start: 20091111
  3. NITROGLYCERIN [Suspect]
  4. BLINDED NO TREATMENT RECEIVED [Suspect]
     Dosage: CODE NOT BROKEN
     Route: 048
     Dates: start: 20100310
  5. METFORMIN HCL [Concomitant]
     Indication: DIABETES MELLITUS
     Dosage: 500 MG, QD
     Route: 048
     Dates: start: 20080320
  6. BLINDED ALISKIREN [Suspect]
     Indication: CARDIAC FAILURE
     Dosage: CODE NOT BROKEN
     Route: 048
     Dates: start: 20091126
  7. ENALAPRIL MALEATE [Suspect]
     Dosage: CODE NOT BROKEN
     Route: 048
     Dates: start: 20100303, end: 20100306
  8. BLINDED ALISKIREN [Suspect]
     Dosage: CODE NOT BROKEN
     Route: 048
     Dates: start: 20100310
  9. ENALAPRIL MALEATE [Suspect]
     Indication: CARDIAC FAILURE
     Dosage: UNK
     Route: 048
     Dates: start: 20091008
  10. ISOSORBIDE DINITRATE [Suspect]
     Indication: ANGINA PECTORIS
  11. ASPIRIN [Concomitant]
     Indication: MYOCARDIAL INFARCTION
     Dosage: 100 MG, QD
     Route: 048
     Dates: start: 20020814
  12. BLINDED ALISKIREN [Suspect]
     Dosage: CODE NOT BROKEN
     Route: 048
     Dates: start: 20100303, end: 20100306
  13. BLINDED NO TREATMENT RECEIVED [Suspect]
     Dosage: CODE NOT BROKEN
     Route: 048
     Dates: start: 20100303, end: 20100306
  14. SIMVASTATIN [Concomitant]
     Indication: ANGINA PECTORIS
  15. BLINDED NO TREATMENT RECEIVED [Suspect]
     Indication: CARDIAC FAILURE
     Dosage: CODE NOT BROKEN
     Route: 048
     Dates: start: 20091126
  16. BLINDED ALISKIREN [Suspect]
     Dosage: NO TREATMENT
     Route: 048
     Dates: start: 20100307, end: 20100309
  17. SIMVASTATIN [Concomitant]
     Indication: DYSLIPIDAEMIA
     Dosage: 20 MG, QD
     Route: 048
     Dates: start: 20090413, end: 20110808
  18. ENALAPRIL MALEATE [Suspect]
     Dosage: CODE NOT BROKEN
     Route: 048
     Dates: start: 20100310
  19. ENALAPRIL MALEATE [Suspect]
     Dosage: NO TREATMENT
     Route: 048
     Dates: start: 20100307, end: 20100309
  20. BLINDED NO TREATMENT RECEIVED [Suspect]
     Dosage: NO TREATMENT
     Route: 048
     Dates: start: 20100307, end: 20100309

REACTIONS (16)
  - VERTIGO [None]
  - LOSS OF CONSCIOUSNESS [None]
  - VENTRICULAR EXTRASYSTOLES [None]
  - ANGINA PECTORIS [None]
  - COLD SWEAT [None]
  - CIRCULATORY COLLAPSE [None]
  - DIZZINESS [None]
  - DISEASE PROGRESSION [None]
  - ANGINA UNSTABLE [None]
  - CHEST PAIN [None]
  - RIGHT VENTRICULAR FAILURE [None]
  - PULMONARY CONGESTION [None]
  - MYOCARDIAL ISCHAEMIA [None]
  - CARDIAC FAILURE [None]
  - CARDIAC DISORDER [None]
  - HYPOTENSION [None]
